FAERS Safety Report 18661879 (Version 2)
Quarter: 2021Q3

REPORT INFORMATION
  Report Type: Spontaneous
  Country: DE (occurrence: DE)
  Receive Date: 20201224
  Receipt Date: 20210824
  Transmission Date: 20211014
  Serious: Yes (Hospitalization)
  Sender: FDA-Public Use
  Company Number: DE-TEVA-2020-DE-1860064

PATIENT
  Age: 86 Year
  Sex: Male

DRUGS (11)
  1. CYANOCOBALAMIN (VITAMIN B12) [Concomitant]
     Dosage: 1X MONTH
  2. ASS 100 [Concomitant]
     Active Substance: ASPIRIN
     Dosage: 100 MILLIGRAM DAILY; 0?1?0?0
  3. VERAPAMIL [Concomitant]
     Active Substance: VERAPAMIL HYDROCHLORIDE
     Dosage: 240 MILLIGRAM DAILY; 1?1?1?0
  4. RISEDRONAT AL 35MG [Concomitant]
     Dosage: 35 MG / WEEK, 1X ON SATURDAY
  5. FERRO SANOL [Concomitant]
     Active Substance: FERROUS GLYCINE SULFATE
     Dosage: 50 MILLIGRAM DAILY; 0?1?0?0
  6. NATRIUMCHLORID [Concomitant]
     Active Substance: SODIUM CHLORIDE
     Dosage: 1 DOSAGE FORMS DAILY; 0?1?0?0
  7. DEKRISTOL 20000I.E. [Concomitant]
     Dosage: 20,000 IU / 2 WEEKS
  8. PANTOPRAZOL [Concomitant]
     Active Substance: PANTOPRAZOLE SODIUM
     Dosage: 40 MILLIGRAM DAILY;  1?0?0?0
  9. MAGNESIUM [Concomitant]
     Active Substance: MAGNESIUM
     Dosage: 400 MILLIGRAM DAILY;  0?0?0?1
  10. GABAPENTIN. [Concomitant]
     Active Substance: GABAPENTIN
     Dosage: 1200 MILLIGRAM DAILY; 1?1?1?1
  11. CARBAMAZEPIN [Suspect]
     Active Substance: CARBAMAZEPINE
     Dosage: 800 MILLIGRAM DAILY; 1?1?1?1

REACTIONS (3)
  - Vomiting [Unknown]
  - Syncope [Unknown]
  - Abdominal pain [Unknown]
